FAERS Safety Report 16801976 (Version 2)
Quarter: 2019Q3

REPORT INFORMATION
  Report Type: Spontaneous
  Country: US (occurrence: US)
  Receive Date: 20190912
  Receipt Date: 20190923
  Transmission Date: 20191005
  Serious: Yes (Hospitalization, Other)
  Sender: FDA-Public Use
  Company Number: US-PFIZER INC-2019189108

PATIENT
  Age: 64 Year
  Sex: Female
  Weight: 78.93 kg

DRUGS (2)
  1. XELJANZ [Suspect]
     Active Substance: TOFACITINIB CITRATE
     Indication: ARTHRITIS
     Dosage: 5 MG, UNK
     Dates: start: 2018
  2. XELJANZ [Suspect]
     Active Substance: TOFACITINIB CITRATE
     Dosage: 35 MG, WEEKLY
     Route: 048
     Dates: start: 201902, end: 20190420

REACTIONS (10)
  - Pain in extremity [Unknown]
  - Arthralgia [Unknown]
  - Product use issue [Unknown]
  - Back pain [Unknown]
  - Product dose omission [Unknown]
  - Product use in unapproved indication [Unknown]
  - Tension [Unknown]
  - Intervertebral disc protrusion [Unknown]
  - Peripheral swelling [Unknown]
  - Off label use [Unknown]

NARRATIVE: CASE EVENT DATE: 2018
